FAERS Safety Report 17348903 (Version 1)
Quarter: 2020Q1

REPORT INFORMATION
  Report Type: Spontaneous
  Country: US (occurrence: US)
  Receive Date: 20200129
  Receipt Date: 20200129
  Transmission Date: 20200409
  Serious: Yes (Disabling, Other)
  Sender: FDA-Public Use
  Company Number: None

PATIENT
  Age: 44 Year
  Sex: Female
  Weight: 67.5 kg

DRUGS (15)
  1. PROPANOL [Concomitant]
     Active Substance: PROPRANOLOL HYDROCHLORIDE
  2. BUTALBITAL [Concomitant]
     Active Substance: BUTALBITAL
  3. OCCIPITAL SHOTS [Concomitant]
  4. HYDROXYZINE [Concomitant]
     Active Substance: HYDROXYZINE HYDROCHLORIDE
  5. CHAMOMILE TEA [Concomitant]
     Active Substance: MATRICARIA RECUTITA
  6. TOPIMAX [Concomitant]
  7. COMPAZINE [Concomitant]
     Active Substance: PROCHLORPERAZINE MALEATE
  8. MAGNESIUM [Concomitant]
     Active Substance: MAGNESIUM
  9. TORADOL [Concomitant]
     Active Substance: KETOROLAC TROMETHAMINE
  10. SALINE [Concomitant]
     Active Substance: SODIUM CHLORIDE
  11. FRANKINCENSE [Concomitant]
  12. TIZANADINE [Concomitant]
     Active Substance: TIZANIDINE
  13. AIMOVIG [Suspect]
     Active Substance: ERENUMAB-AOOE
     Indication: MIGRAINE
     Dosage: ?          QUANTITY:1 INJECTION(S);OTHER FREQUENCY:MONTHLY;OTHER ROUTE:SUBCUTANEOUS INJECTION?
     Route: 058
     Dates: start: 20180801, end: 20190301
  14. BOTOX [Concomitant]
     Active Substance: ONABOTULINUMTOXINA
  15. LAVENDER [Concomitant]
     Active Substance: ALCOHOL

REACTIONS (1)
  - Premature menopause [None]

NARRATIVE: CASE EVENT DATE: 20190514
